FAERS Safety Report 5837379-X (Version None)
Quarter: 2008Q3

REPORT INFORMATION
  Report Type: 
  Country: None (occurrence: None)
  Receive Date: 20080807
  Receipt Date: 20080730
  Transmission Date: 20090109
  Serious: Yes (Death)
  Sender: FDA-Public Use
  Company Number: JP-PFIZER INC-2008063815

PATIENT
  Sex: Female

DRUGS (1)
  1. HALCION [Suspect]
     Route: 048

REACTIONS (4)
  - DROWNING [None]
  - DRUG TOXICITY [None]
  - LOSS OF CONSCIOUSNESS [None]
  - OVERDOSE [None]
